FAERS Safety Report 15554567 (Version 1)
Quarter: 2018Q4

REPORT INFORMATION
  Report Type: Spontaneous
  Country: PT (occurrence: PT)
  Receive Date: 20181026
  Receipt Date: 20181026
  Transmission Date: 20190205
  Serious: Yes (Hospitalization)
  Sender: FDA-Public Use
  Company Number: PT-CPL-000729

PATIENT
  Age: 83 Year
  Sex: Female

DRUGS (10)
  1. MEMANTINE/MEMANTINE HYDROCHLORIDE [Concomitant]
  2. DONEPEZIL. [Suspect]
     Active Substance: DONEPEZIL
     Indication: DEMENTIA ALZHEIMER^S TYPE
  3. FOSAVANCE [Concomitant]
     Active Substance: ALENDRONATE SODIUM\CHOLECALCIFEROL
  4. LERCANIDIPINE [Concomitant]
     Active Substance: LERCANIDIPINE
  5. BETAHISTINE [Concomitant]
     Active Substance: BETAHISTINE
     Dosage: 2ID
  6. LISINOPRIL. [Concomitant]
     Active Substance: LISINOPRIL
  7. CALCIUM D SANDOZ [Concomitant]
  8. DAFLON [Concomitant]
     Dosage: STRENGTH:500
  9. SIMVASTATIN. [Concomitant]
     Active Substance: SIMVASTATIN
  10. CLOPIDOGREL [Concomitant]
     Active Substance: CLOPIDOGREL BISULFATE

REACTIONS (4)
  - Asthenia [Recovered/Resolved]
  - Vomiting [Recovered/Resolved]
  - Dehydration [Recovered/Resolved]
  - Nausea [Recovered/Resolved]
